FAERS Safety Report 17816586 (Version 2)
Quarter: 2020Q4

REPORT INFORMATION
  Report Type: Spontaneous
  Country: US (occurrence: US)
  Receive Date: 20200522
  Receipt Date: 20201017
  Transmission Date: 20210113
  Serious: No
  Sender: FDA-Public Use
  Company Number: NVSC2020US140243

PATIENT
  Sex: Female

DRUGS (1)
  1. LATANOPROST 0.005% W/V EYE DROPS, SOLUTION [Suspect]
     Active Substance: LATANOPROST
     Indication: PRODUCT USED FOR UNKNOWN INDICATION
     Dosage: 1 GTT, QD, (IN EACH EYE)
     Route: 065

REACTIONS (2)
  - Product leakage [Unknown]
  - Accidental exposure to product [Unknown]
